FAERS Safety Report 10075966 (Version 3)
Quarter: 2014Q2

REPORT INFORMATION
  Report Type: Report from Study
  Country: US (occurrence: US)
  Receive Date: 20140414
  Receipt Date: 20140617
  Transmission Date: 20141212
  Serious: Yes (Other)
  Sender: FDA-Public Use
  Company Number: US-SANOFI-AVENTIS-2013SA073771

PATIENT
  Age: 54 Year
  Sex: Female

DRUGS (2)
  1. AUBAGIO [Suspect]
     Indication: MULTIPLE SCLEROSIS
     Dosage: PRODUCT START DATE- 28OR 29 MAY
     Route: 048
     Dates: start: 20130527
  2. BIOTENE [Concomitant]

REACTIONS (10)
  - Spinal disorder [Recovering/Resolving]
  - Pulmonary congestion [Unknown]
  - Breath sounds abnormal [Not Recovered/Not Resolved]
  - Cough [Not Recovered/Not Resolved]
  - Insomnia [Not Recovered/Not Resolved]
  - Fatigue [Not Recovered/Not Resolved]
  - Memory impairment [Unknown]
  - Alopecia [Recovering/Resolving]
  - Hypertension [Unknown]
  - Drug dose omission [Unknown]
